FAERS Safety Report 4316836-1 (Version None)
Quarter: 2004Q1

REPORT INFORMATION
  Report Type: 
  Country: None (occurrence: None)
  Receive Date: 20040309
  Receipt Date: 20031203
  Transmission Date: 20041129
  Serious: Yes (Hospitalization)
  Sender: FDA-Public Use
  Company Number: A03200302878

PATIENT
  Age: 58 Year
  Sex: Female
  Weight: 126.1 kg

DRUGS (13)
  1. ELOXATIN [Suspect]
     Indication: COLORECTAL CANCER METASTATIC
     Dosage: 183 MG OTHER - INTRAVENOUS NOS
     Route: 042
     Dates: start: 20031203, end: 20031203
  2. FLUOROURACIL [Concomitant]
  3. LEUCOVORIN [Concomitant]
  4. WARFARIN SODIUM [Concomitant]
  5. METFORMIN HYDROCHLORIDE [Concomitant]
  6. INSULIN [Concomitant]
  7. ATORVASTATIN [Concomitant]
  8. CALCIUM [Concomitant]
  9. VERAPAMIL [Concomitant]
  10. ENALAPRIL MALEATE [Concomitant]
  11. IRON [Concomitant]
  12. LOPERAMIDE HCL [Concomitant]
  13. ANTIASTHMATIC [Concomitant]

REACTIONS (3)
  - INFUSION SITE SWELLING [None]
  - INJECTION SITE EXTRAVASATION [None]
  - NON-CARDIAC CHEST PAIN [None]
